FAERS Safety Report 4341640-8 (Version None)
Quarter: 2004Q2

REPORT INFORMATION
  Report Type: 
  Country: None (occurrence: None)
  Receive Date: 20040420
  Receipt Date: 20040115
  Transmission Date: 20050107
  Serious: Yes (Hospitalization, Disabling)
  Sender: FDA-Public Use
  Company Number: US-ROCHE-356278

PATIENT
  Age: 12 Year
  Sex: Female
  Weight: 65.8 kg

DRUGS (2)
  1. ACCUTANE [Suspect]
     Route: 048
     Dates: start: 19961204
  2. ACCUTANE [Suspect]
     Dosage: DOSAGE REGIMEN STATED AS ALTERNATING WITH 40 MG ONE DAY THEN 80 MG THE NEXT DAY.
     Route: 048

REACTIONS (29)
  - AGITATION [None]
  - AORTIC VALVE INCOMPETENCE [None]
  - AUTOIMMUNE DISORDER [None]
  - CERVICOBRACHIAL SYNDROME [None]
  - COLITIS ULCERATIVE [None]
  - CONFUSIONAL STATE [None]
  - DEPRESSION [None]
  - DYSPHAGIA [None]
  - DYSTHYMIC DISORDER [None]
  - HALLUCINATION [None]
  - HEADACHE [None]
  - HEPATITIS [None]
  - HYPERTENSION [None]
  - ILL-DEFINED DISORDER [None]
  - INFLAMMATORY BOWEL DISEASE [None]
  - INTERVERTEBRAL DISC DEGENERATION [None]
  - LUPUS NEPHRITIS [None]
  - MITRAL VALVE INCOMPETENCE [None]
  - MYOPIA [None]
  - NASAL DRYNESS [None]
  - NERVOUS SYSTEM DISORDER [None]
  - PANCREATITIS [None]
  - PERICARDIAL EFFUSION [None]
  - POLYP [None]
  - RENAL FAILURE [None]
  - STAPHYLOCOCCAL INFECTION [None]
  - SYSTEMIC LUPUS ERYTHEMATOSUS [None]
  - TRICUSPID VALVE INCOMPETENCE [None]
  - VAGINAL MYCOSIS [None]
